FAERS Safety Report 7257670-2 (Version None)
Quarter: 2011Q1

REPORT INFORMATION
  Report Type: 
  Country: None (occurrence: None)
  Receive Date: 20110129
  Receipt Date: 20100511
  Transmission Date: 20110831
  Serious: No
  Sender: FDA-Public Use
  Company Number: US-ABBOTT-10P-163-0644151-00

PATIENT
  Sex: Female
  Weight: 61.744 kg

DRUGS (3)
  1. ALLERGY SHOTS [Concomitant]
     Indication: HYPERSENSITIVITY
  2. ANTI-INFLAMMATORY [Concomitant]
     Indication: ANKYLOSING SPONDYLITIS
  3. HUMIRA [Suspect]
     Indication: ANKYLOSING SPONDYLITIS
     Route: 058
     Dates: start: 20100301

REACTIONS (5)
  - HEADACHE [None]
  - PHOTOPHOBIA [None]
  - INSOMNIA [None]
  - NAUSEA [None]
  - UPPER RESPIRATORY TRACT INFECTION [None]
